FAERS Safety Report 12774015 (Version 1)
Quarter: 2016Q3

REPORT INFORMATION
  Report Type: Spontaneous
  Country: SE (occurrence: SE)
  Receive Date: 20160923
  Receipt Date: 20160923
  Transmission Date: 20161109
  Serious: Yes (Hospitalization)
  Sender: FDA-Public Use
  Company Number: SE-CONCORDIA PHARMACEUTICALS INC.-GSH201609-004682

PATIENT
  Age: 77 Year
  Sex: Female

DRUGS (1)
  1. TRANYLCYPROMINE [Suspect]
     Active Substance: TRANYLCYPROMINE
     Route: 048

REACTIONS (1)
  - Serotonin syndrome [Recovered/Resolved]
